FAERS Safety Report 6696337-6 (Version None)
Quarter: 2010Q2

REPORT INFORMATION
  Report Type: 
  Country: None (occurrence: None)
  Receive Date: 20100419
  Receipt Date: 20090721
  Transmission Date: 20101027
  Serious: No
  Sender: FDA-Public Use
  Company Number: 2009-00416

PATIENT
  Age: 70 Year
  Sex: Female
  Weight: 61.2356 kg

DRUGS (4)
  1. ZICAM COLD REMEDY GEL SWABS [Suspect]
     Dosage: SPORADIC - SEVERAL YRS; SEVERAL YRS - RECENT
  2. MULTI-VITAMIN [Concomitant]
  3. CALCIUM WITH VITAMIN D [Concomitant]
  4. VITAMIN C [Concomitant]

REACTIONS (1)
  - ANOSMIA [None]
